FAERS Safety Report 9475892 (Version 1)
Quarter: 2013Q3

REPORT INFORMATION
  Report Type: Spontaneous
  Country: US (occurrence: US)
  Receive Date: 20130826
  Receipt Date: 20130826
  Transmission Date: 20140515
  Serious: No
  Sender: FDA-Public Use
  Company Number: US-PFIZER INC-2013245793

PATIENT
  Sex: Female

DRUGS (2)
  1. PRISTIQ [Suspect]
     Indication: DEPRESSION
     Dosage: 50 MG, UNK
     Dates: start: 20130813, end: 20130816
  2. WELLBUTRIN XL [Concomitant]
     Indication: DEPRESSION
     Dosage: 450 MG, AS NEEDED

REACTIONS (2)
  - Dizziness [Recovering/Resolving]
  - Malaise [Recovering/Resolving]
